FAERS Safety Report 8496489-1 (Version None)
Quarter: 2012Q2

REPORT INFORMATION
  Report Type: 
  Country: None (occurrence: None)
  Receive Date: 20120629
  Receipt Date: 20120621
  Transmission Date: 20120825
  Serious: Yes (Other)
  Sender: FDA-Public Use
  Company Number: GB-DEXPHARM-20120753

PATIENT
  Age: 63 Year
  Sex: Male

DRUGS (19)
  1. NICOTINE [Concomitant]
  2. SILDENAFIL [Concomitant]
  3. SILDENAFIL [Concomitant]
  4. VARENICLINE [Concomitant]
  5. SIMVASTATIN [Concomitant]
  6. SYMBICORT [Concomitant]
  7. BUDESONIDE [Concomitant]
  8. PHENYTOIN SODIUM [Concomitant]
  9. SYMBICORT [Concomitant]
  10. BUDESONIDE [Concomitant]
  11. BECLOMETHASONE DIPROPIONATE [Concomitant]
  12. FUROSEMIDE [Concomitant]
  13. RANITIDINE [Concomitant]
  14. SIMVASTATIN [Concomitant]
  15. OMEPRAZOLE [Suspect]
     Dates: start: 20120522
  16. LISINOPRIL [Suspect]
     Dates: start: 20120215, end: 20120314
  17. LISINOPRIL [Suspect]
     Dates: start: 20120514, end: 20120611
  18. LISINOPRIL [Suspect]
     Dates: start: 20120326, end: 20120423
  19. NICOTINE [Concomitant]

REACTIONS (3)
  - RASH MACULAR [None]
  - EYE SWELLING [None]
  - OEDEMA MOUTH [None]
